FAERS Safety Report 6843734-1 (Version None)
Quarter: 2010Q3

REPORT INFORMATION
  Report Type: 
  Country: None (occurrence: None)
  Receive Date: 20100715
  Receipt Date: 20100713
  Transmission Date: 20110219
  Serious: Yes (Hospitalization)
  Sender: FDA-Public Use
  Company Number: PL-BRISTOL-MYERS SQUIBB COMPANY-15190291

PATIENT
  Age: 73 Year
  Sex: Male
  Weight: 56 kg

DRUGS (11)
  1. CISPLATIN [Suspect]
     Indication: NON-SMALL CELL LUNG CANCER
     Dosage: INF:4
     Route: 042
     Dates: start: 20100416, end: 20100618
  2. PEMETREXED DISODIUM [Suspect]
     Indication: NON-SMALL CELL LUNG CANCER
     Dosage: INF:4
     Route: 042
     Dates: start: 20100416, end: 20100618
  3. MORPHINE SULFATE [Concomitant]
     Route: 048
     Dates: start: 20100407
  4. FOLIC ACID [Concomitant]
     Route: 048
     Dates: start: 20100409
  5. DEXAMETHASONE ACETATE [Concomitant]
     Dosage: 2DF:2TABS
     Route: 048
     Dates: start: 20100623, end: 20100625
  6. METOCLOPRAMIDE [Concomitant]
     Route: 042
     Dates: start: 20100618, end: 20100625
  7. MEGESTROL ACETATE [Concomitant]
     Dosage: MEGALIA
     Route: 048
     Dates: start: 20100517
  8. VITAMIN B6 [Concomitant]
     Dosage: 1DF:2TABS
     Route: 048
     Dates: start: 20100619
  9. BETALOC ZOK [Concomitant]
     Route: 048
     Dates: start: 20100621
  10. KETONAL [Concomitant]
     Route: 048
     Dates: start: 20100623
  11. POLPRAZOL [Concomitant]
     Route: 048
     Dates: start: 20100623

REACTIONS (1)
  - ANAEMIA [None]
